FAERS Safety Report 9075570 (Version 1)
Quarter: 2013Q1

REPORT INFORMATION
  Report Type: Spontaneous
  Country: US (occurrence: US)
  Receive Date: 20130131
  Receipt Date: 20130131
  Transmission Date: 20140127
  Serious: Yes (Other)
  Sender: FDA-Public Use
  Company Number: US-ABBOTT-12P-163-1004961-00

PATIENT
  Age: 65 None
  Sex: Male

DRUGS (2)
  1. HUMIRA [Suspect]
     Indication: PSORIASIS
     Dates: start: 201203, end: 201210
  2. DOVONEX [Concomitant]
     Indication: PSORIASIS
     Route: 061

REACTIONS (1)
  - Malignant melanoma [Unknown]
